FAERS Safety Report 16371939 (Version 1)
Quarter: 2019Q3

REPORT INFORMATION
  Report Type: Spontaneous
  Country: US (occurrence: US)
  Receive Date: 20190529
  Receipt Date: 20190529
  Transmission Date: 20191004
  Serious: No
  Sender: FDA-Public Use
  Company Number: None

PATIENT
  Age: 48 Year
  Sex: Female

DRUGS (10)
  1. PULMOZYME 1MG/ML NEB [Concomitant]
  2. GABAPENTIN 300MG [Concomitant]
     Active Substance: GABAPENTIN
  3. PANTOPRAZOLE 20MG [Concomitant]
     Active Substance: PANTOPRAZOLE SODIUM
  4. KALYDECO [Suspect]
     Active Substance: IVACAFTOR
     Indication: CYSTIC FIBROSIS
     Route: 048
  5. XOPENEX 0.63MG NEB [Concomitant]
  6. PREDNISONE 5MG [Concomitant]
     Active Substance: PREDNISONE
  7. SODIUM CHLORIDE 7% NEB [Concomitant]
  8. COLISTIMETHATE 150MG NEB [Concomitant]
  9. LUNESTA [Concomitant]
     Active Substance: ESZOPICLONE
  10. AZITHROMYCIN 250MG [Concomitant]
     Active Substance: AZITHROMYCIN ANHYDROUS

REACTIONS (1)
  - Cough [None]

NARRATIVE: CASE EVENT DATE: 20190528
